FAERS Safety Report 14361857 (Version 2)
Quarter: 2018Q1

REPORT INFORMATION
  Report Type: Report from Study
  Country: None (occurrence: US)
  Receive Date: 20180108
  Receipt Date: 20180112
  Transmission Date: 20180509
  Serious: Yes (Hospitalization, Other)
  Sender: FDA-Public Use
  Company Number: US-ABBVIE-18K-163-2214523-00

PATIENT
  Age: 62 Year
  Sex: Male
  Weight: 90.8 kg

DRUGS (13)
  1. CELECOXIB. [Concomitant]
     Active Substance: CELECOXIB
     Indication: PRODUCT USED FOR UNKNOWN INDICATION
  2. ACETAMINOPHEN. [Concomitant]
     Active Substance: ACETAMINOPHEN
     Indication: HEADACHE
  3. DULOXETINE. [Concomitant]
     Active Substance: DULOXETINE
     Indication: DEPRESSION
  4. METOPROLOL. [Concomitant]
     Active Substance: METOPROLOL
     Indication: HYPERTENSION
  5. ISOSORBID MONONITRATE [Concomitant]
     Active Substance: ISOSORBIDE MONONITRATE
     Indication: CHEST PAIN
  6. LOPERAMIDE [Concomitant]
     Active Substance: LOPERAMIDE
     Indication: COLITIS ULCERATIVE
  7. METHIMAZOLE. [Concomitant]
     Active Substance: METHIMAZOLE
     Indication: HYPERTHYROIDISM
  8. FUROSEMIDE. [Concomitant]
     Active Substance: FUROSEMIDE
     Indication: OEDEMA PERIPHERAL
  9. PRAMIPEXOLE. [Concomitant]
     Active Substance: PRAMIPEXOLE
     Indication: RESTLESS LEGS SYNDROME
  10. HUMIRA [Suspect]
     Active Substance: ADALIMUMAB
     Indication: COLITIS ULCERATIVE
     Route: 058
     Dates: start: 2012
  11. ASPIRIN. [Concomitant]
     Active Substance: ASPIRIN
     Indication: PRODUCT USED FOR UNKNOWN INDICATION
  12. DOCUSATE [Concomitant]
     Active Substance: DOCUSATE
     Indication: CONSTIPATION
  13. NITROGLYCERIN. [Concomitant]
     Active Substance: NITROGLYCERIN
     Indication: PRODUCT USED FOR UNKNOWN INDICATION

REACTIONS (9)
  - Osteoarthritis [Not Recovered/Not Resolved]
  - Amnesia [Not Recovered/Not Resolved]
  - Intestinal polyp [Recovered/Resolved]
  - Atrial fibrillation [Recovered/Resolved]
  - Atrial fibrillation [Recovered/Resolved]
  - Post procedural complication [Not Recovered/Not Resolved]
  - Sleep apnoea syndrome [Not Recovered/Not Resolved]
  - Atrial fibrillation [Recovered/Resolved]
  - Fall [Not Recovered/Not Resolved]

NARRATIVE: CASE EVENT DATE: 2016
